FAERS Safety Report 6557720-2 (Version None)
Quarter: 2010Q1

REPORT INFORMATION
  Report Type: 
  Country: None (occurrence: None)
  Receive Date: 20100126
  Receipt Date: 20091118
  Transmission Date: 20100710
  Serious: Yes (Hospitalization)
  Sender: FDA-Public Use
  Company Number: LMI-2009-00327 (0)

PATIENT
  Age: 71 Year
  Sex: Male
  Weight: 103.8737 kg

DRUGS (13)
  1. DEFINITY [Suspect]
     Indication: CHEST DISCOMFORT
     Dosage: SEE IMAGE
     Route: 040
     Dates: start: 20091117, end: 20091117
  2. DEFINITY [Suspect]
     Indication: STRESS ECHOCARDIOGRAM
     Dosage: SEE IMAGE
     Route: 040
     Dates: start: 20091117, end: 20091117
  3. DEFINITY [Suspect]
     Indication: CHEST DISCOMFORT
     Dosage: SEE IMAGE
     Route: 040
     Dates: start: 20091117, end: 20091117
  4. DEFINITY [Suspect]
     Indication: STRESS ECHOCARDIOGRAM
     Dosage: SEE IMAGE
     Route: 040
     Dates: start: 20091117, end: 20091117
  5. CARTIA XT [Concomitant]
  6. CLONAZEPAM [Concomitant]
  7. IMDUR [Concomitant]
  8. LISINOPRIL [Concomitant]
  9. METOPROLOL (METOPROLOL) [Concomitant]
  10. NITROQUICK (GLYCERYL TRINITRATE) [Concomitant]
  11. OMEPRAZOLE [Concomitant]
  12. PROSCAR [Concomitant]
  13. ZOLPIDEM [Concomitant]

REACTIONS (7)
  - AGITATION [None]
  - ATRIAL FIBRILLATION [None]
  - BACK PAIN [None]
  - CHEST PAIN [None]
  - HEADACHE [None]
  - NECK PAIN [None]
  - VENTRICULAR TACHYCARDIA [None]
